FAERS Safety Report 26105698 (Version 1)
Quarter: 2025Q4

REPORT INFORMATION
  Report Type: Spontaneous
  Country: EU (occurrence: EU)
  Receive Date: 20251201
  Receipt Date: 20251201
  Transmission Date: 20260117
  Serious: Yes (Other)
  Sender: NOVARTIS
  Company Number: None

PATIENT
  Age: 46 Year
  Sex: Male

DRUGS (1)
  1. KESIMPTA [Suspect]
     Active Substance: OFATUMUMAB
     Indication: Multiple sclerosis
     Dosage: UNK,SOUS-CUTAN?E
     Route: 058
     Dates: start: 20250101

REACTIONS (1)
  - Lymphocytosis [Not Recovered/Not Resolved]

NARRATIVE: CASE EVENT DATE: 20250918
